APPROVED DRUG PRODUCT: METHAMPHETAMINE HYDROCHLORIDE
Active Ingredient: METHAMPHETAMINE HYDROCHLORIDE
Strength: 5MG
Dosage Form/Route: TABLET;ORAL
Application: A084931 | Product #001
Applicant: REXAR PHARMACAL
Approved: Approved Prior to Jan 1, 1982 | RLD: No | RS: No | Type: DISCN